FAERS Safety Report 7102525-7 (Version None)
Quarter: 2010Q4

REPORT INFORMATION
  Report Type: 
  Country: None (occurrence: None)
  Receive Date: 20101115
  Receipt Date: 20101111
  Transmission Date: 20110411
  Serious: Yes (Other)
  Sender: FDA-Public Use
  Company Number: US-ALLERGAN-1012085US

PATIENT
  Age: 73 Year
  Sex: Male

DRUGS (3)
  1. LUMIGAN [Suspect]
     Indication: OPEN ANGLE GLAUCOMA
     Dosage: 1 GTT, QHS
     Route: 047
     Dates: end: 20100915
  2. LUMIGAN [Suspect]
     Dosage: 1 GTT, QHS
     Route: 047
     Dates: end: 20100915
  3. PRESERVATIVE FREE TIMOLOL [Concomitant]
     Indication: GLAUCOMA

REACTIONS (1)
  - CHEMICAL BURNS OF EYE [None]
